FAERS Safety Report 10057003 (Version 1)
Quarter: 2014Q2

REPORT INFORMATION
  Report Type: Spontaneous
  Country: US (occurrence: US)
  Receive Date: 20140403
  Receipt Date: 20140403
  Transmission Date: 20141212
  Serious: Yes (Other)
  Sender: FDA-Public Use
  Company Number: US-LUNDBECK-DKLU1098781

PATIENT
  Age: 16 Year
  Sex: Male

DRUGS (2)
  1. SABRIL     (TABLET) [Suspect]
     Indication: INFANTILE SPASMS
     Route: 048
  2. SABRIL     (TABLET) [Suspect]
     Route: 048

REACTIONS (2)
  - Drug withdrawal convulsions [Unknown]
  - Drug dose omission [Not Recovered/Not Resolved]
